FAERS Safety Report 7591693-9 (Version None)
Quarter: 2011Q3

REPORT INFORMATION
  Report Type: 
  Country: None (occurrence: None)
  Receive Date: 20110706
  Receipt Date: 20110614
  Transmission Date: 20111222
  Serious: Yes (Other)
  Sender: FDA-Public Use
  Company Number: US-BAYER-2011-003643

PATIENT
  Age: 22 Year
  Sex: Female
  Weight: 58.957 kg

DRUGS (2)
  1. YASMIN [Suspect]
     Indication: ACNE
     Dosage: UNK
     Dates: start: 20040201, end: 20071001
  2. NSAID'S [Concomitant]
     Dosage: UNK
     Dates: start: 19950101, end: 20100101

REACTIONS (6)
  - CONVULSION [None]
  - GALLBLADDER DISORDER [None]
  - CHOLECYSTITIS [None]
  - EMOTIONAL DISTRESS [None]
  - PAIN [None]
  - CHOLECYSTITIS ACUTE [None]
